FAERS Safety Report 4690336-1 (Version None)
Quarter: 2005Q2

REPORT INFORMATION
  Report Type: 
  Country: None (occurrence: None)
  Receive Date: 20050615
  Receipt Date: 20050603
  Transmission Date: 20051028
  Serious: Yes (Hospitalization, Disabling)
  Sender: FDA-Public Use
  Company Number: US-MERCK-0506USA00926

PATIENT
  Age: 46 Year
  Sex: Female
  Weight: 93 kg

DRUGS (18)
  1. MOTRIN [Concomitant]
     Route: 048
  2. FLEXEN (NAPROXEN) [Concomitant]
     Route: 048
  3. SAMARIN 70 [Concomitant]
     Route: 048
  4. PROCARDIA [Concomitant]
     Indication: CARDIAC DISORDER
     Route: 048
  5. ASPIRIN [Concomitant]
     Route: 048
  6. CELEBREX [Concomitant]
     Route: 048
  7. NORVASC [Concomitant]
     Indication: CARDIAC DISORDER
     Route: 065
  8. CARDIZEM [Concomitant]
     Indication: CARDIAC DISORDER
     Route: 065
  9. HEPATHROMBIN (HEPARIN) [Concomitant]
     Indication: CARDIAC VALVE DISEASE
     Route: 065
  10. PREMARIN [Concomitant]
     Route: 065
  11. TRIAM-A [Concomitant]
     Route: 065
  12. CORRECTOL (DOCUSATE SODIUM) [Concomitant]
     Route: 065
  13. CATAFLAM [Concomitant]
     Route: 065
  14. VICODIN [Concomitant]
     Route: 048
  15. LASIX [Concomitant]
     Route: 065
  16. CATAPRES [Concomitant]
     Route: 065
  17. HORMONES (UNSPECIFIED) [Concomitant]
     Route: 065
  18. VIOXX [Suspect]
     Indication: RHEUMATOID ARTHRITIS
     Route: 048
     Dates: start: 20001001, end: 20030201

REACTIONS (24)
  - ANGINA PECTORIS [None]
  - CARDIAC DISORDER [None]
  - CARDIAC FAILURE CONGESTIVE [None]
  - CARDIAC MURMUR [None]
  - CARDIOVASCULAR DISORDER [None]
  - CHRONIC FATIGUE SYNDROME [None]
  - CONFUSIONAL STATE [None]
  - DEEP VEIN THROMBOSIS [None]
  - DEPRESSION [None]
  - GASTRIC DISORDER [None]
  - GASTROENTERITIS [None]
  - GASTROOESOPHAGEAL REFLUX DISEASE [None]
  - GLAUCOMA [None]
  - GOUT [None]
  - HAEMATOCHEZIA [None]
  - HAEMORRHAGE [None]
  - HEART DISEASE CONGENITAL [None]
  - HEART RATE IRREGULAR [None]
  - HYPERTENSION [None]
  - IRRITABLE BOWEL SYNDROME [None]
  - PANIC DISORDER [None]
  - SINUSITIS [None]
  - SLEEP APNOEA SYNDROME [None]
  - VIRAL INFECTION [None]
